FAERS Safety Report 23337333 (Version 1)
Quarter: 2023Q4

REPORT INFORMATION
  Report Type: Report from Study
  Country: US (occurrence: US)
  Receive Date: 20231226
  Receipt Date: 20231226
  Transmission Date: 20240110
  Serious: Yes (Hospitalization, Other)
  Sender: FDA-Public Use
  Company Number: US-UCBSA-2023041596

PATIENT
  Sex: Male

DRUGS (3)
  1. CERTOLIZUMAB PEGOL [Suspect]
     Active Substance: CERTOLIZUMAB PEGOL
     Indication: Product used for unknown indication
     Dosage: 2 INJECTIONS EVERY 4 WEEKS, 400 MG (2 X200 MG/ML)
     Dates: start: 20230807
  2. CERTOLIZUMAB PEGOL [Suspect]
     Active Substance: CERTOLIZUMAB PEGOL
     Dosage: 400 MILLIGRAM, EV 2 WEEKS(QOW)
     Dates: start: 2023
  3. CERTOLIZUMAB PEGOL [Suspect]
     Active Substance: CERTOLIZUMAB PEGOL
     Dosage: 400 MILLIGRAM, EV 4 WEEKS
     Dates: start: 2023, end: 20231119

REACTIONS (10)
  - Lyme disease [Recovering/Resolving]
  - Nasopharyngitis [Recovering/Resolving]
  - Injection site discolouration [Recovered/Resolved]
  - Dermatitis contact [Not Recovered/Not Resolved]
  - Musculoskeletal stiffness [Not Recovered/Not Resolved]
  - Spinal stenosis [Not Recovered/Not Resolved]
  - Injection site pain [Not Recovered/Not Resolved]
  - Incorrect dose administered [Unknown]
  - Drug ineffective [Unknown]
  - Wrong technique in product usage process [Unknown]

NARRATIVE: CASE EVENT DATE: 20230101
